FAERS Safety Report 10898977 (Version 1)
Quarter: 2015Q1

REPORT INFORMATION
  Report Type: Spontaneous
  Country: GB (occurrence: GB)
  Receive Date: 20150309
  Receipt Date: 20150309
  Transmission Date: 20150721
  Serious: Yes (Other)
  Sender: FDA-Public Use
  Company Number: ALCN2015GB001627

PATIENT
  Age: 68 Year
  Sex: Female
  Weight: 60.32 kg

DRUGS (1)
  1. MAXITROL [Suspect]
     Active Substance: DEXAMETHASONE\NEOMYCIN SULFATE\POLYMYXIN B SULFATE
     Indication: POSTOPERATIVE CARE
     Dosage: 1 DF, QID
     Route: 047

REACTIONS (4)
  - Pruritus [Recovering/Resolving]
  - Swelling face [Recovering/Resolving]
  - Eye irritation [Recovering/Resolving]
  - Local swelling [Recovering/Resolving]
